FAERS Safety Report 20925479 (Version 1)
Quarter: 2022Q2

REPORT INFORMATION
  Report Type: Spontaneous
  Country: RS (occurrence: RS)
  Receive Date: 20220607
  Receipt Date: 20220607
  Transmission Date: 20220720
  Serious: Yes (Congenital Anomaly, Other)
  Sender: FDA-Public Use
  Company Number: RS-ALLERGAN-2218290US

PATIENT
  Sex: Male
  Weight: 4.55 kg

DRUGS (1)
  1. PROGESTERONE [Suspect]
     Active Substance: PROGESTERONE
     Indication: Exposure during pregnancy
     Route: 064

REACTIONS (7)
  - Multiple congenital abnormalities [Not Recovered/Not Resolved]
  - Clinodactyly [Not Recovered/Not Resolved]
  - Anomaly of external ear congenital [Not Recovered/Not Resolved]
  - Neck deformity [Not Recovered/Not Resolved]
  - Obesity [Not Recovered/Not Resolved]
  - Hypotonia [Not Recovered/Not Resolved]
  - Pregnancy [Unknown]
